FAERS Safety Report 13828846 (Version 1)
Quarter: 2017Q3

REPORT INFORMATION
  Report Type: Report from Study
  Country: KR (occurrence: KR)
  Receive Date: 20170803
  Receipt Date: 20170803
  Transmission Date: 20171127
  Serious: Yes (Other)
  Sender: FDA-Public Use
  Company Number: KR-ROCHE-1920397

PATIENT
  Age: 74 Year
  Sex: Female

DRUGS (3)
  1. ALTEPLASE. [Suspect]
     Active Substance: ALTEPLASE
     Dosage: CONTINUOUS INFUSION OVER 60 MINUTES
     Route: 042
  2. ALTEPLASE. [Suspect]
     Active Substance: ALTEPLASE
     Indication: ISCHAEMIC STROKE
     Dosage: A 10% LOADING BOLUS INJECTION
     Route: 040
  3. UROKINASE [Suspect]
     Active Substance: UROKINASE
     Indication: ISCHAEMIC STROKE
     Dosage: TOTAL DOSE: 300,000 UNIT
     Route: 013

REACTIONS (1)
  - Haemorrhagic transformation stroke [Unknown]
